FAERS Safety Report 25031244 (Version 1)
Quarter: 2025Q1

REPORT INFORMATION
  Report Type: Spontaneous
  Country: US (occurrence: None)
  Receive Date: 20250228
  Receipt Date: 20250228
  Transmission Date: 20250408
  Serious: Yes (Hospitalization)
  Sender: FDA-CTU
  Company Number: None

PATIENT
  Sex: Female

DRUGS (2)
  1. OPSUMIT [Suspect]
     Active Substance: MACITENTAN
     Indication: Pulmonary arterial hypertension
     Dosage: FREQUENCY : DAILY;?
     Route: 048
     Dates: start: 202104
  2. TWASO DPI MAINT KIT PWD [Concomitant]

REACTIONS (4)
  - Respiratory syncytial virus infection [None]
  - Fluid retention [None]
  - Blood pressure decreased [None]
  - Drug intolerance [None]
